FAERS Safety Report 17338841 (Version 1)
Quarter: 2020Q1

REPORT INFORMATION
  Report Type: Spontaneous
  Country: US (occurrence: US)
  Receive Date: 20200128
  Receipt Date: 20200128
  Transmission Date: 20200409
  Serious: No
  Sender: FDA-Public Use
  Company Number: None

PATIENT
  Age: 89 Year
  Sex: Female
  Weight: 51.75 kg

DRUGS (4)
  1. MIRTAZAPINE 15MG [Concomitant]
     Active Substance: MIRTAZAPINE
  2. RANITIDINE. [Concomitant]
     Active Substance: RANITIDINE
  3. NINLARO [Suspect]
     Active Substance: IXAZOMIB CITRATE
     Indication: PLASMA CELL MYELOMA
     Dosage: ?          OTHER FREQUENCY:ON DAY 1,8,15;?
     Route: 048
     Dates: start: 20191114, end: 20200128
  4. IBUPROFEN 200MG [Concomitant]
     Active Substance: IBUPROFEN

REACTIONS (1)
  - Thrombocytopenia [None]

NARRATIVE: CASE EVENT DATE: 20200108
